FAERS Safety Report 14565411 (Version 1)
Quarter: 2018Q1

REPORT INFORMATION
  Report Type: Spontaneous
  Country: US (occurrence: US)
  Receive Date: 20180223
  Receipt Date: 20180223
  Transmission Date: 20180509
  Serious: Yes (Life-Threatening, Hospitalization, Congenital Anomaly, Other)
  Sender: FDA-Public Use
  Company Number: US-IBIGEN-2018.03464

PATIENT
  Sex: Male

DRUGS (1)
  1. AMPICILLIN [Suspect]
     Active Substance: AMPICILLIN
     Indication: BETA HAEMOLYTIC STREPTOCOCCAL INFECTION
     Route: 064

REACTIONS (4)
  - Foetal exposure during pregnancy [Unknown]
  - Cardiac aneurysm [Recovering/Resolving]
  - Thrombosis [Recovering/Resolving]
  - Ventricular extrasystoles [Recovering/Resolving]
